FAERS Safety Report 17423055 (Version 1)
Quarter: 2020Q1

REPORT INFORMATION
  Report Type: Spontaneous
  Country: US (occurrence: US)
  Receive Date: 20200130
  Receipt Date: 20200130
  Transmission Date: 20200409
  Serious: Yes (Hospitalization)
  Sender: FDA-Public Use
  Company Number: None

PATIENT
  Age: 74 Year
  Sex: Male

DRUGS (1)
  1. WARFARIN (WARFARIN NA (EXELAN) 5MG TAB [Suspect]
     Active Substance: WARFARIN
     Indication: AORTIC VALVE REPLACEMENT
     Dosage: ?          OTHER , PM;?
     Dates: start: 20140122

REACTIONS (5)
  - Anticoagulation drug level above therapeutic [None]
  - Hypotension [None]
  - Hypophagia [None]
  - Pharyngeal haemorrhage [None]
  - Tachycardia [None]

NARRATIVE: CASE EVENT DATE: 20200127
